FAERS Safety Report 8189743-4 (Version None)
Quarter: 2012Q1

REPORT INFORMATION
  Report Type: 
  Country: None (occurrence: None)
  Receive Date: 20120221
  Receipt Date: 20120112
  Transmission Date: 20120608
  Serious: No
  Sender: FDA-Public Use
  Company Number: 1000027139

PATIENT
  Age: 58 Year
  Sex: Female

DRUGS (9)
  1. AMBIEN [Concomitant]
  2. VIIBRYD [Suspect]
     Indication: PANIC ATTACK
     Dosage: SEE IMAGE
     Route: 048
     Dates: start: 20111201, end: 20111201
  3. VIIBRYD [Suspect]
     Indication: PANIC ATTACK
     Dosage: SEE IMAGE
     Route: 048
     Dates: start: 20111201, end: 20111201
  4. VIIBRYD [Suspect]
     Indication: PANIC ATTACK
     Dosage: SEE IMAGE
     Route: 048
     Dates: start: 20110101, end: 20110101
  5. VIIBRYD [Suspect]
     Indication: PANIC ATTACK
     Dosage: SEE IMAGE
     Route: 048
     Dates: start: 20110101, end: 20110101
  6. LEVOTHYROXINE (LEVOTHYROXINE SODIUM) (LEVOTHYROXINE SODIUM) [Concomitant]
  7. ZEGERID (OMEPRAZOLE, SODIUM BICARBONATE) (OMEPRAZOLE, SODIUM BICARBONA [Concomitant]
  8. PLAQUENIL (HYDROXYCHLOROQUINE) (HYDROXYCHLOROQUINE) [Concomitant]
  9. CALCIUM (CALCIUM) (CALCIUM) [Concomitant]

REACTIONS (8)
  - OFF LABEL USE [None]
  - NAUSEA [None]
  - VOMITING [None]
  - FEELING COLD [None]
  - PARAESTHESIA [None]
  - HYPERHIDROSIS [None]
  - DIARRHOEA [None]
  - ANXIETY [None]
